FAERS Safety Report 8261397-8 (Version None)
Quarter: 2012Q2

REPORT INFORMATION
  Report Type: 
  Country: None (occurrence: None)
  Receive Date: 20120402
  Receipt Date: 20120320
  Transmission Date: 20120825
  Serious: Yes (Hospitalization, Other)
  Sender: FDA-Public Use
  Company Number: AUR-APL-2012-01390

PATIENT
  Age: 53 Year
  Sex: Male
  Weight: 113 kg

DRUGS (7)
  1. LISINOPRIL [Suspect]
     Indication: HYPERTENSION
     Dosage: (20 MG, 1 D),
  2. LIPITOR [Suspect]
     Indication: BLOOD CHOLESTEROL INCREASED
     Dosage: (20 MG, 1 D),
  3. AMIODARONE HCL [Concomitant]
  4. METOPROLOL TARTRATE [Concomitant]
  5. IMDUR-ER (ISOSORBIDE MONONITRATE) [Concomitant]
  6. ZOLOFT [Suspect]
     Indication: DEPRESSION
     Dosage: (100 MG, 1 D),
  7. VISTARIL [Suspect]
     Indication: DEPRESSION
     Dosage: 50 MG (25 MG, 2 IN 1 D),

REACTIONS (6)
  - DEPRESSION [None]
  - CORONARY ARTERY OCCLUSION [None]
  - ALCOHOL USE [None]
  - ANXIETY [None]
  - PRURITUS [None]
  - INTERMITTENT EXPLOSIVE DISORDER [None]
